FAERS Safety Report 12781048 (Version 1)
Quarter: 2016Q3

REPORT INFORMATION
  Report Type: Spontaneous
  Country: FR (occurrence: FR)
  Receive Date: 20160926
  Receipt Date: 20160926
  Transmission Date: 20161109
  Serious: Yes (Death, Life-Threatening)
  Sender: FDA-Public Use
  Company Number: FR-SA-2016SA174149

PATIENT
  Age: 70 Year
  Sex: Male

DRUGS (3)
  1. HEPARIN SODIUM PANPHARMA [Suspect]
     Active Substance: HEPARIN SODIUM
     Indication: THROMBOSIS PROPHYLAXIS
     Route: 065
     Dates: start: 20160426, end: 20160428
  2. LOVENOX [Suspect]
     Active Substance: ENOXAPARIN SODIUM
     Indication: THROMBOSIS PROPHYLAXIS
     Route: 042
     Dates: start: 20160422, end: 20160422
  3. LOVENOX [Suspect]
     Active Substance: ENOXAPARIN SODIUM
     Indication: THROMBOSIS PROPHYLAXIS
     Route: 042
     Dates: start: 20160430, end: 20160430

REACTIONS (3)
  - Heparin-induced thrombocytopenia [Fatal]
  - Thrombosis [Unknown]
  - Platelet disorder [Unknown]

NARRATIVE: CASE EVENT DATE: 20160430
